FAERS Safety Report 24646956 (Version 1)
Quarter: 2024Q4

REPORT INFORMATION
  Report Type: Spontaneous
  Country: SY (occurrence: SY)
  Receive Date: 20241121
  Receipt Date: 20241121
  Transmission Date: 20250115
  Serious: Yes (Other)
  Sender: RANBAXY
  Company Number: SY-SUN PHARMACEUTICAL INDUSTRIES LTD-2024R1-479861

PATIENT
  Age: 14 Year
  Sex: Male
  Weight: 120 kg

DRUGS (2)
  1. METHOTREXATE [Suspect]
     Active Substance: METHOTREXATE
     Indication: Juvenile idiopathic arthritis
     Dosage: UNK
     Route: 065
  2. TOCILIZUMAB [Suspect]
     Active Substance: TOCILIZUMAB
     Indication: Juvenile idiopathic arthritis
     Dosage: 4 MILLIGRAM/KILOGRAM
     Route: 042

REACTIONS (2)
  - Hepatitis A [Unknown]
  - Hepatic steatosis [Unknown]
